FAERS Safety Report 13381360 (Version 1)
Quarter: 2020Q3

REPORT INFORMATION
  Report Type: Report from Study
  Country: JP (occurrence: JP)
  Receive Date: 20170329
  Receipt Date: 20170329
  Transmission Date: 20201105
  Serious: Yes (Death, Life-Threatening, Other)
  Sender: FDA-Public Use
  Company Number: JP-ROCHE-1608044

PATIENT
  Age: 83 Year
  Sex: Female
  Weight: 35 kg

DRUGS (3)
  1. ALECTINIB. [Suspect]
     Active Substance: ALECTINIB
     Indication: LUNG ADENOCARCINOMA
     Route: 048
     Dates: start: 20141118, end: 20150430
  2. ALECTINIB. [Suspect]
     Active Substance: ALECTINIB
     Indication: LUNG ADENOCARCINOMA
     Route: 048
     Dates: start: 20150526, end: 20151105
  3. ALECTINIB. [Suspect]
     Active Substance: ALECTINIB
     Indication: LUNG ADENOCARCINOMA
     Route: 048
     Dates: start: 20141007, end: 20141104

REACTIONS (11)
  - Interstitial lung disease [Recovered/Resolved]
  - Dysgeusia [Recovered/Resolved]
  - Upper respiratory tract infection [Recovered/Resolved]
  - Diarrhoea [Recovered/Resolved]
  - Skin infection [Recovered/Resolved]
  - Anaemia [Not Recovered/Not Resolved]
  - Oedema peripheral [Not Recovered/Not Resolved]
  - Decreased appetite [Recovered/Resolved]
  - Large intestinal ulcer [Not Recovered/Not Resolved]
  - Pneumonia [Recovered/Resolved]
  - Arthralgia [Not Recovered/Not Resolved]

NARRATIVE: CASE EVENT DATE: 20141104
